FAERS Safety Report 8790061 (Version 3)
Quarter: 2012Q4

REPORT INFORMATION
  Report Type: 
  Country: US (occurrence: US)
  Receive Date: 20120917
  Receipt Date: 20121101
  Transmission Date: 20130627
  Serious: Yes (Death, Other)
  Sender: FDA-Public Use
  Company Number: US-TEVA-358783USA

PATIENT
  Sex: Male

DRUGS (1)
  1. CLARAVIS [Suspect]

REACTIONS (1)
  - Completed suicide [Fatal]
